FAERS Safety Report 18713448 (Version 1)
Quarter: 2021Q1

REPORT INFORMATION
  Report Type: Spontaneous
  Country: JP (occurrence: JP)
  Receive Date: 20210107
  Receipt Date: 20210107
  Transmission Date: 20210419
  Serious: Yes (Other)
  Sender: FDA-Public Use
  Company Number: JP-ALLERGAN-2050508US

PATIENT
  Sex: Male

DRUGS (2)
  1. LINACLOTIDE ? BP [Suspect]
     Active Substance: LINACLOTIDE
     Dosage: 0.125 MG, UNKNOWN FREQUENCY, BEFORE BREAKFAST
     Route: 048
  2. LINACLOTIDE ? BP [Suspect]
     Active Substance: LINACLOTIDE
     Indication: PRODUCT USED FOR UNKNOWN INDICATION
     Dosage: 0.5 MG, QPM
     Route: 048

REACTIONS (4)
  - Dyschezia [Recovered/Resolved]
  - Diarrhoea [Unknown]
  - Enterocolitis [Unknown]
  - Wrong technique in product usage process [Unknown]
